FAERS Safety Report 11994433 (Version 1)
Quarter: 2016Q1

REPORT INFORMATION
  Report Type: Spontaneous
  Country: US (occurrence: US)
  Receive Date: 20160203
  Receipt Date: 20160203
  Transmission Date: 20160526
  Serious: No
  Sender: FDA-Public Use
  Company Number: US-UCBSA-2015032750

PATIENT
  Age: 61 Year
  Sex: Female

DRUGS (1)
  1. KEPPRA [Suspect]
     Active Substance: LEVETIRACETAM
     Indication: GENERALISED TONIC-CLONIC SEIZURE
     Dosage: 750 MG 4/ DAY
     Dates: start: 2004

REACTIONS (2)
  - Nasopharyngitis [Unknown]
  - Dizziness [Unknown]

NARRATIVE: CASE EVENT DATE: 201509
